FAERS Safety Report 9250909 (Version 1)
Quarter: 2013Q1

REPORT INFORMATION
  Report Type: Spontaneous
  Country: US (occurrence: None)
  Receive Date: 20130305
  Receipt Date: 20130305
  Transmission Date: 20140127
  Serious: Yes (Other)
  Sender: FDA-Public Use
  Company Number: 163-21880-12100738

PATIENT
  Age: 60 Year
  Sex: Male

DRUGS (2)
  1. REVLIMID (LENALIDOMIDE) [Suspect]
     Indication: PRODUCT USED FOR UNKNOWN INDICATION
     Dosage: 08/21/2012 - ONGOING, CAPSULE, 15 MG, 21 IN 28 D, PO
     Dates: start: 20120821
  2. DEXAMETHASONE [Suspect]
     Indication: PRODUCT USED FOR UNKNOWN INDICATION
     Dosage: 5 TAB, 1 IN 1 WK

REACTIONS (1)
  - Dysphonia [None]
